FAERS Safety Report 9864588 (Version 2)
Quarter: 2014Q1

REPORT INFORMATION
  Report Type: Spontaneous
  Country: US (occurrence: US)
  Receive Date: 20140203
  Receipt Date: 20140203
  Transmission Date: 20141002
  Serious: No
  Sender: FDA-Public Use
  Company Number: US-AMGEN-USASP2014000634

PATIENT
  Age: 69 Year
  Sex: Female

DRUGS (7)
  1. ENBREL [Suspect]
     Indication: RHEUMATOID ARTHRITIS
     Dosage: 50 MG, QWK
     Route: 065
     Dates: start: 20050811
  2. PREDNISONE [Suspect]
     Indication: ARTHRALGIA
     Dosage: UNK
     Route: 048
  3. PREDNISONE [Suspect]
     Indication: PAIN IN EXTREMITY
  4. PREDNISONE [Suspect]
     Indication: TENDON PAIN
  5. PREDNISONE [Suspect]
     Indication: LOCAL SWELLING
  6. PLAQUENIL                          /00072603/ [Concomitant]
     Dosage: 200 MG, QD
     Route: 048
  7. METHOTREXATE [Concomitant]
     Dosage: 12.5 MG, QWK
     Route: 048

REACTIONS (7)
  - Arthralgia [Not Recovered/Not Resolved]
  - Pain in extremity [Not Recovered/Not Resolved]
  - Tendon pain [Not Recovered/Not Resolved]
  - Local swelling [Not Recovered/Not Resolved]
  - Insomnia [Not Recovered/Not Resolved]
  - Joint swelling [Not Recovered/Not Resolved]
  - Injection site pain [Recovered/Resolved]
